FAERS Safety Report 5415950-7 (Version None)
Quarter: 2007Q3

REPORT INFORMATION
  Report Type: 
  Country: None (occurrence: None)
  Receive Date: 20070815
  Receipt Date: 20070810
  Transmission Date: 20080115
  Serious: Yes (Other)
  Sender: FDA-Public Use
  Company Number: US-SHR-US-2006-034906

PATIENT
  Age: 70 Year
  Sex: Female

DRUGS (3)
  1. MAGNEVIST [Suspect]
     Dosage: 40 ML, 1 DOSE
     Dates: start: 20040624, end: 20040624
  2. THALIDOMIDE [Concomitant]
     Indication: MULTIPLE MYELOMA
  3. WARFARIN SODIUM [Concomitant]

REACTIONS (4)
  - EXTREMITY CONTRACTURE [None]
  - MOBILITY DECREASED [None]
  - NEPHROGENIC SYSTEMIC FIBROSIS [None]
  - SKIN ULCER [None]
